FAERS Safety Report 16105839 (Version 2)
Quarter: 2019Q2

REPORT INFORMATION
  Report Type: Report from Study
  Country: GB (occurrence: GB)
  Receive Date: 20190322
  Receipt Date: 20190412
  Transmission Date: 20190711
  Serious: Yes (Other)
  Sender: FDA-Public Use
  Company Number: GB-ASPEN-GLO2019GB002648

PATIENT
  Age: 63 Year
  Sex: Male

DRUGS (30)
  1. VINCRISTINE [Suspect]
     Active Substance: VINCRISTINE
     Dosage: CYCLICAL
     Route: 065
  2. DOXORUBICIN [Suspect]
     Active Substance: DOXORUBICIN
     Dosage: CYCLICAL
     Route: 065
  3. DEXAMETHASONE. [Suspect]
     Active Substance: DEXAMETHASONE
     Dosage: CYCLICAL
     Route: 065
  4. THALIDOMIDE [Suspect]
     Active Substance: THALIDOMIDE
     Indication: PLASMA CELL MYELOMA
     Dosage: CYCLICAL
     Route: 065
  5. THALIDOMIDE [Suspect]
     Active Substance: THALIDOMIDE
     Dosage: CYCLICAL
     Route: 065
  6. VINCRISTINE [Suspect]
     Active Substance: VINCRISTINE
     Dosage: CYCLICAL
     Route: 065
  7. DOXORUBICIN [Suspect]
     Active Substance: DOXORUBICIN
     Dosage: CYCLICAL
     Route: 065
  8. MELPHALAN. [Suspect]
     Active Substance: MELPHALAN
     Dosage: HIGH DOSE, CYCLICAL
     Route: 065
  9. THALIDOMIDE [Suspect]
     Active Substance: THALIDOMIDE
     Dosage: CYCLICAL
     Route: 065
  10. VINCRISTINE [Suspect]
     Active Substance: VINCRISTINE
     Dosage: CYCLICAL
     Route: 065
  11. DOXORUBICIN [Suspect]
     Active Substance: DOXORUBICIN
     Dosage: CYCLICAL
     Route: 065
  12. DEXAMETHASONE. [Suspect]
     Active Substance: DEXAMETHASONE
     Indication: PLASMA CELL MYELOMA
     Dosage: CYCLICAL
     Route: 065
  13. THALIDOMIDE [Suspect]
     Active Substance: THALIDOMIDE
     Dosage: CYCLICAL
     Route: 065
  14. DOXORUBICIN [Suspect]
     Active Substance: DOXORUBICIN
     Dosage: CYCLICAL
     Route: 065
  15. MELPHALAN. [Suspect]
     Active Substance: MELPHALAN
     Indication: PLASMA CELL MYELOMA
     Dosage: HIGH DOSE, CYCLICAL
     Route: 065
  16. MELPHALAN. [Suspect]
     Active Substance: MELPHALAN
     Dosage: HIGH DOSE, CYCLICAL
     Route: 065
  17. VINCRISTINE [Suspect]
     Active Substance: VINCRISTINE
     Indication: PLASMA CELL MYELOMA
     Dosage: CYCLICAL
     Route: 065
  18. VINCRISTINE [Suspect]
     Active Substance: VINCRISTINE
     Dosage: CYCLICAL
     Route: 065
  19. DEXAMETHASONE. [Suspect]
     Active Substance: DEXAMETHASONE
     Dosage: CYCLICAL
     Route: 065
  20. VINCRISTINE [Suspect]
     Active Substance: VINCRISTINE
     Dosage: CYCLICAL
     Route: 065
  21. DOXORUBICIN [Suspect]
     Active Substance: DOXORUBICIN
     Dosage: CYCLICAL
     Route: 065
  22. DEXAMETHASONE. [Suspect]
     Active Substance: DEXAMETHASONE
     Dosage: CYCLICAL
     Route: 065
  23. MELPHALAN. [Suspect]
     Active Substance: MELPHALAN
     Dosage: HIGH DOSE, CYCLICAL
     Route: 065
  24. MELPHALAN. [Suspect]
     Active Substance: MELPHALAN
     Dosage: HIGH DOSE, CYCLICAL
     Route: 065
  25. THALIDOMIDE [Suspect]
     Active Substance: THALIDOMIDE
     Dosage: CYCLICAL
     Route: 065
  26. DOXORUBICIN [Suspect]
     Active Substance: DOXORUBICIN
     Indication: PLASMA CELL MYELOMA
     Dosage: CYCLICAL
     Route: 065
  27. DEXAMETHASONE. [Suspect]
     Active Substance: DEXAMETHASONE
     Dosage: CYCLICAL
     Route: 065
  28. DEXAMETHASONE. [Suspect]
     Active Substance: DEXAMETHASONE
     Dosage: CYCLICAL
     Route: 065
  29. MELPHALAN. [Suspect]
     Active Substance: MELPHALAN
     Dosage: HIGH DOSE, CYCLICAL
     Route: 065
  30. THALIDOMIDE [Suspect]
     Active Substance: THALIDOMIDE
     Dosage: CYCLICAL
     Route: 065

REACTIONS (2)
  - Apoptosis [Unknown]
  - Genotoxicity [Unknown]
